FAERS Safety Report 8332764-9 (Version None)
Quarter: 2012Q2

REPORT INFORMATION
  Report Type: 
  Country: None (occurrence: None)
  Receive Date: 20120503
  Receipt Date: 20120418
  Transmission Date: 20120825
  Serious: Yes (Other)
  Sender: FDA-Public Use
  Company Number: CN-JNJFOC-20101208180

PATIENT
  Sex: Male

DRUGS (2)
  1. MICONAZOLE [Suspect]
     Indication: BODY TINEA
     Route: 061
     Dates: start: 20101001
  2. MICONAZOLE [Suspect]
     Route: 061

REACTIONS (4)
  - CONJUNCTIVAL HYPERAEMIA [None]
  - ACCIDENTAL EXPOSURE [None]
  - CORNEAL DISORDER [None]
  - EYELID OEDEMA [None]
